FAERS Safety Report 13639363 (Version 1)
Quarter: 2017Q2

REPORT INFORMATION
  Report Type: Spontaneous
  Country: US (occurrence: US)
  Receive Date: 20170609
  Receipt Date: 20170609
  Transmission Date: 20170830
  Serious: No
  Sender: FDA-Public Use
  Company Number: US-ROCHE-1015923

PATIENT
  Sex: Female
  Weight: 40.86 kg

DRUGS (4)
  1. RECLAST [Suspect]
     Active Substance: ZOLEDRONIC ACID
     Indication: PRODUCT USED FOR UNKNOWN INDICATION
     Route: 065
     Dates: start: 20111024
  2. BONIVA [Suspect]
     Active Substance: IBANDRONATE SODIUM
     Indication: PRODUCT USED FOR UNKNOWN INDICATION
     Route: 065
  3. REGLAN [Suspect]
     Active Substance: METOCLOPRAMIDE HYDROCHLORIDE
     Indication: PRODUCT USED FOR UNKNOWN INDICATION
     Route: 065
  4. KLONOPIN [Suspect]
     Active Substance: CLONAZEPAM
     Indication: FACIAL PARALYSIS
     Route: 065
     Dates: start: 201110

REACTIONS (19)
  - Anxiety [Unknown]
  - Abnormal behaviour [Unknown]
  - Weight decreased [Unknown]
  - Arthralgia [Unknown]
  - Palpitations [Unknown]
  - Withdrawal syndrome [Unknown]
  - Chills [Unknown]
  - Hypercalcaemia [Unknown]
  - Bone pain [Unknown]
  - Insomnia [Unknown]
  - Feeling abnormal [Unknown]
  - Hyponatraemia [Unknown]
  - Nausea [Unknown]
  - Drug ineffective [Unknown]
  - Infusion related reaction [Unknown]
  - Pyrexia [Unknown]
  - Decreased appetite [Unknown]
  - Myalgia [Unknown]
  - Blood parathyroid hormone increased [Not Recovered/Not Resolved]
